FAERS Safety Report 11811784 (Version 1)
Quarter: 2015Q4

REPORT INFORMATION
  Report Type: Spontaneous
  Country: US (occurrence: US)
  Receive Date: 20151208
  Receipt Date: 20151208
  Transmission Date: 20160305
  Serious: No
  Sender: FDA-Public Use
  Company Number: US-LPDUSPRD-20140731

PATIENT
  Age: 84 Year
  Sex: Male

DRUGS (1)
  1. VENOFER [Suspect]
     Active Substance: IRON SUCROSE
     Dosage: 200MG IN 100ML NSS IN 2HRS
     Route: 042
     Dates: start: 20141107, end: 20141111

REACTIONS (5)
  - Extravasation [Unknown]
  - Off label use [Unknown]
  - Injection site pain [Unknown]
  - Injection site reaction [Unknown]
  - Inappropriate schedule of drug administration [Unknown]

NARRATIVE: CASE EVENT DATE: 20141107
